FAERS Safety Report 8900624 (Version 1)
Quarter: 2012Q4

REPORT INFORMATION
  Report Type: 
  Country: GB (occurrence: GB)
  Receive Date: 20121109
  Receipt Date: 20121109
  Transmission Date: 20130627
  Serious: Yes (Other)
  Sender: FDA-Public Use
  Company Number: GB-ROXANE LABORATORIES, INC.-2012-RO-02350RO

PATIENT
  Age: 67 Year
  Sex: Female

DRUGS (3)
  1. METHOTREXATE [Suspect]
     Indication: POLYCHONDRITIS
  2. PREDNISOLONE [Suspect]
     Indication: POLYCHONDRITIS
  3. ADALIMUMAB [Suspect]
     Indication: POLYCHONDRITIS

REACTIONS (1)
  - Mycobacterium chelonae infection [Recovered/Resolved]
